FAERS Safety Report 8578101-6 (Version None)
Quarter: 2012Q3

REPORT INFORMATION
  Report Type: 
  Country: None (occurrence: None)
  Receive Date: 20120808
  Receipt Date: 20120802
  Transmission Date: 20120928
  Serious: Yes (Other)
  Sender: FDA-Public Use
  Company Number: PHHY2012BR067258

PATIENT
  Sex: Female

DRUGS (14)
  1. SERTRALINE [Concomitant]
  2. DIAZEPAM [Concomitant]
     Indication: BLOOD PRESSURE INCREASED
  3. ATENOLOL [Concomitant]
  4. CIPROFIBRATE [Concomitant]
     Indication: BLOOD TRIGLYCERIDES INCREASED
     Dosage: 1 DF, QD
     Route: 048
  5. SUSTRATE [Concomitant]
     Indication: CHEST PAIN
     Dosage: 5 DF, QD
  6. CLONAZEPAM [Concomitant]
     Indication: EPILEPSY
     Dosage: 1 DF, A DAY
  7. HYDERGINE [Suspect]
     Indication: DIZZINESS
     Dosage: 1 DF, QD
     Route: 048
  8. OMEPRAZOLE [Concomitant]
  9. METOPROLOL SUCCINATE [Concomitant]
     Indication: CARDIAC DISORDER
     Dosage: 1 DF, QD
     Route: 048
  10. LOVAZA [Concomitant]
  11. SIMVASTATIN [Concomitant]
     Indication: BLOOD CHOLESTEROL INCREASED
     Dosage: 1 DF, QD
  12. CITALOPRAM HYDROBROMIDE [Concomitant]
  13. PANTOPRAZOLE [Concomitant]
  14. ACETAMINOPHEN [Concomitant]
     Indication: PAIN

REACTIONS (15)
  - HALLUCINATION [None]
  - EYE DISORDER [None]
  - SENSATION OF HEAVINESS [None]
  - APPARENT DEATH [None]
  - SENSORY DISTURBANCE [None]
  - ANAPHYLACTIC SHOCK [None]
  - GLAUCOMA [None]
  - BALANCE DISORDER [None]
  - URINE OUTPUT DECREASED [None]
  - DIZZINESS [None]
  - DYSPNOEA [None]
  - SYNCOPE [None]
  - FEELING DRUNK [None]
  - HYPERTENSION [None]
  - DIABETES MELLITUS [None]
